FAERS Safety Report 7874996-X (Version None)
Quarter: 2011Q4

REPORT INFORMATION
  Report Type: 
  Country: None (occurrence: None)
  Receive Date: 20111031
  Receipt Date: 20100421
  Transmission Date: 20120403
  Serious: No
  Sender: FDA-Public Use
  Company Number: US-BAYER-201020779NA

PATIENT
  Age: 45 Year
  Sex: Male
  Weight: 149 kg

DRUGS (4)
  1. ^SYNTHREX^ [Concomitant]
  2. AVELOX [Suspect]
     Indication: BRONCHITIS
  3. CELEBREX [Concomitant]
  4. AVELOX [Suspect]
     Indication: PNEUMONIA
     Dosage: 400 MG, QD
     Dates: start: 20100421

REACTIONS (2)
  - OEDEMA PERIPHERAL [None]
  - RASH [None]
